FAERS Safety Report 4401837-5 (Version None)
Quarter: 2004Q3

REPORT INFORMATION
  Report Type: 
  Country: None (occurrence: None)
  Receive Date: 20040714
  Receipt Date: 20040701
  Transmission Date: 20050211
  Serious: Yes (Other)
  Sender: FDA-Public Use
  Company Number: 2004044348

PATIENT
  Sex: Female
  Weight: 97.977 kg

DRUGS (5)
  1. NEURONTIN [Suspect]
     Indication: POST-TRAUMATIC STRESS DISORDER
  2. QUETIAPINE FUMARATE (QUETIAPINE FUMARATE) [Suspect]
     Indication: ILL-DEFINED DISORDER
  3. RISPERDAL [Suspect]
     Indication: ILL-DEFINED DISORDER
  4. OXCARBAZEPINE (OXCARBAZEPINE) [Concomitant]
  5. ZOLPIDEM TARTRATE [Concomitant]

REACTIONS (9)
  - FEELING COLD [None]
  - HEADACHE [None]
  - HYPERHIDROSIS [None]
  - MUSCLE TWITCHING [None]
  - MUSCULOSKELETAL STIFFNESS [None]
  - NERVE INJURY [None]
  - SUICIDAL IDEATION [None]
  - TARDIVE DYSKINESIA [None]
  - WEIGHT DECREASED [None]
